FAERS Safety Report 17180612 (Version 1)
Quarter: 2019Q4

REPORT INFORMATION
  Report Type: Report from Study
  Country: None (occurrence: CO)
  Receive Date: 20191220
  Receipt Date: 20191220
  Transmission Date: 20200122
  Serious: Yes (Death, Other)
  Sender: FDA-Public Use
  Company Number: CO-ABBVIE-16K-036-3046745-00

PATIENT
  Age: 70 Year
  Sex: Male
  Weight: 56 kg

DRUGS (2)
  1. IMBRUVICA [Suspect]
     Active Substance: IBRUTINIB
     Indication: CHRONIC LYMPHOCYTIC LEUKAEMIA
     Route: 048
     Dates: start: 20160624, end: 20160719
  2. IMBRUVICA [Suspect]
     Active Substance: IBRUTINIB
     Dosage: 2 PILLS INSTEAD OF 3 PILLS
     Route: 048
     Dates: start: 201606

REACTIONS (6)
  - Death [Fatal]
  - Off label use [Unknown]
  - Depressed mood [Not Recovered/Not Resolved]
  - Mobility decreased [Not Recovered/Not Resolved]
  - Incorrect dose administered [Unknown]
  - Abdominal pain [Not Recovered/Not Resolved]

NARRATIVE: CASE EVENT DATE: 20160628
